FAERS Safety Report 8532635-9 (Version None)
Quarter: 2012Q3

REPORT INFORMATION
  Report Type: 
  Country: None (occurrence: None)
  Receive Date: 20120724
  Receipt Date: 20120713
  Transmission Date: 20120928
  Serious: Yes (Hospitalization, Other)
  Sender: FDA-Public Use
  Company Number: CA-BRISTOL-MYERS SQUIBB COMPANY-14952444

PATIENT
  Age: 82 Year
  Sex: Female

DRUGS (15)
  1. METHOTREXATE [Concomitant]
  2. LEVOTHYROXINE SODIUM [Concomitant]
  3. NEXIUM [Concomitant]
  4. FOLIC ACID [Concomitant]
  5. LIPITOR [Concomitant]
  6. NORVASC [Concomitant]
  7. SOFLAX [Concomitant]
  8. FUROSEMIDE [Concomitant]
  9. VITAMIN D [Concomitant]
  10. HYDROXYCHLOROQUINE SULFATE [Concomitant]
  11. FERROUS GLUCONATE [Concomitant]
  12. ACETYLSALICYLIC ACID SRT [Concomitant]
  13. COZAAR [Concomitant]
  14. ORENCIA [Suspect]
     Indication: RHEUMATOID ARTHRITIS
     Dosage: INF:23,DT:28DE09,19AG10,3MR11,11MY,8JN11,16OT11,11JN12,8FB12,LOT:1G64569,EXP:JUL13,OC2013,MA2014.
     Route: 042
     Dates: start: 20091228, end: 20120208
  15. ASCORBIC ACID [Concomitant]

REACTIONS (10)
  - RHEUMATOID ARTHRITIS [None]
  - PNEUMONIA [None]
  - WHEEZING [None]
  - PULMONARY FIBROSIS [None]
  - FATIGUE [None]
  - COUGH [None]
  - LOWER RESPIRATORY TRACT INFECTION [None]
  - CHEST DISCOMFORT [None]
  - PULMONARY OEDEMA [None]
  - PARANASAL SINUS HYPERSECRETION [None]
